FAERS Safety Report 18793925 (Version 1)
Quarter: 2021Q1

REPORT INFORMATION
  Report Type: Spontaneous
  Country: US (occurrence: US)
  Receive Date: 20210127
  Receipt Date: 20210127
  Transmission Date: 20210419
  Serious: Yes (Death, Hospitalization)
  Sender: FDA-Public Use
  Company Number: None

PATIENT
  Age: 65 Year
  Sex: Female
  Weight: 64.8 kg

DRUGS (1)
  1. RITUXIMAB (MOAB C2B8 ANTI CD20, CHIMERIC) 12MG [Suspect]
     Active Substance: RITUXIMAB
     Dates: end: 20201117

REACTIONS (2)
  - COVID-19 [None]
  - General physical health deterioration [None]

NARRATIVE: CASE EVENT DATE: 20201221
